FAERS Safety Report 6638692-9 (Version None)
Quarter: 2010Q1

REPORT INFORMATION
  Report Type: 
  Country: None (occurrence: None)
  Receive Date: 20100317
  Receipt Date: 20100312
  Transmission Date: 20100710
  Serious: Yes (Death, Hospitalization)
  Sender: FDA-Public Use
  Company Number: US-GILEAD-2010-0027648

PATIENT
  Sex: Male

DRUGS (5)
  1. TRUVADA [Suspect]
     Indication: HIV INFECTION
     Dates: start: 20090319
  2. PREZISTA [Suspect]
     Indication: HIV INFECTION
     Route: 048
     Dates: start: 20090319, end: 20090421
  3. RITONAVIR [Suspect]
     Indication: HIV INFECTION
     Dates: start: 20090319
  4. HYDROCHLOROTHIAZIDE [Concomitant]
     Indication: HYPERTENSION
  5. BACTRIM DS [Concomitant]
     Indication: ANTIFUNGAL PROPHYLAXIS

REACTIONS (3)
  - HEPATIC FAILURE [None]
  - HEPATITIS FULMINANT [None]
  - MULTI-ORGAN FAILURE [None]
